FAERS Safety Report 10027708 (Version 5)
Quarter: 2014Q2

REPORT INFORMATION
  Report Type: Spontaneous
  Country: FR (occurrence: FR)
  Receive Date: 20140321
  Receipt Date: 20140424
  Transmission Date: 20141212
  Serious: Yes (Other)
  Sender: FDA-Public Use
  Company Number: FR-VERTEX PHARMACEUTICALS INC-2014-000721

PATIENT
  Age: 36 Year
  Sex: Male

DRUGS (6)
  1. INCIVO [Suspect]
     Indication: HEPATITIS C
     Dosage: 2250 MG, QD
     Route: 048
     Dates: start: 20130409, end: 20130701
  2. PEGASYS [Suspect]
     Indication: HEPATITIS C
     Dosage: 180 ?G, QW
     Route: 058
     Dates: start: 20130409, end: 20130926
  3. COPEGUS [Suspect]
     Indication: HEPATITIS C
     Dosage: 600 MG, QD
     Route: 048
     Dates: start: 20130409, end: 20130926
  4. XYZALL [Concomitant]
     Indication: PROPHYLAXIS
     Dosage: 5 MG, QD
     Route: 048
     Dates: start: 20130328
  5. TELFAST [Concomitant]
     Indication: PROPHYLAXIS
     Dosage: 180 MG, QD
     Route: 048
     Dates: start: 20130328
  6. INIPOMP [Concomitant]
     Indication: PROPHYLAXIS
     Dosage: 40 MG, QD
     Route: 048
     Dates: start: 20130328

REACTIONS (3)
  - Neutropenia [Recovered/Resolved]
  - Anaemia [Recovering/Resolving]
  - Drug ineffective [Unknown]
